FAERS Safety Report 7034827-7 (Version None)
Quarter: 2010Q4

REPORT INFORMATION
  Report Type: 
  Country: None (occurrence: None)
  Receive Date: 20101008
  Receipt Date: 20100928
  Transmission Date: 20110411
  Serious: Yes (Other)
  Sender: FDA-Public Use
  Company Number: BR-ROCHE-705899

PATIENT
  Sex: Female
  Weight: 95 kg

DRUGS (12)
  1. TOCILIZUMAB [Suspect]
     Indication: RHEUMATOID ARTHRITIS
     Dosage: HAD RECEIVED 11 INFUSIONS SO FAR
     Route: 042
     Dates: start: 20090827, end: 20100822
  2. PRELONE [Concomitant]
  3. NAPROSYN [Concomitant]
  4. OMEPRAZOLE [Concomitant]
  5. METHOTREXATE [Concomitant]
     Dosage: TAKEN EVERY WEEK
  6. FOLIC ACID [Concomitant]
  7. ARAVA [Concomitant]
  8. ALDAZIDA [Concomitant]
     Dosage: FREQUENCY: 8 TABLET/WEEK.
  9. LEXOTAN [Concomitant]
     Dosage: FREQUENCY: 8 TABLET/WEEK.
  10. LASIX [Concomitant]
     Dosage: FREQUENCY: 8 TABLET/WEEK.
  11. EXODUS [Concomitant]
     Dosage: 06 MG AFTER LUNCH
  12. DEFLAZACORT [Concomitant]

REACTIONS (16)
  - BLISTER [None]
  - BLOOD CHOLESTEROL INCREASED [None]
  - BLOOD GLUCOSE INCREASED [None]
  - BLOOD TRIGLYCERIDES INCREASED [None]
  - C-REACTIVE PROTEIN INCREASED [None]
  - CHEST DISCOMFORT [None]
  - DYSPNOEA [None]
  - FATIGUE [None]
  - LIPIDS INCREASED [None]
  - OEDEMA [None]
  - PRURITUS GENERALISED [None]
  - RHEUMATOID FACTOR INCREASED [None]
  - SENSATION OF HEAVINESS [None]
  - SWELLING [None]
  - URINE ANALYSIS ABNORMAL [None]
  - WEIGHT INCREASED [None]
